FAERS Safety Report 18230355 (Version 68)
Quarter: 2025Q3

REPORT INFORMATION
  Report Type: Report from Study
  Country: US (occurrence: US)
  Receive Date: 20200904
  Receipt Date: 20250925
  Transmission Date: 20251021
  Serious: Yes (Hospitalization, Other)
  Sender: TAKEDA
  Company Number: US-SHIRE-US202028548

PATIENT
  Age: 61 Year
  Sex: Female
  Weight: 60 kg

DRUGS (70)
  1. HUMAN IMMUNOGLOBULIN G [Suspect]
     Active Substance: HUMAN IMMUNOGLOBULIN G
     Indication: Immunodeficiency common variable
     Dosage: 40 GRAM, Q4WEEKS
  2. HUMAN IMMUNOGLOBULIN G [Suspect]
     Active Substance: HUMAN IMMUNOGLOBULIN G
     Dosage: 40 GRAM, Q4WEEKS
     Dates: start: 20181210
  3. HUMAN IMMUNOGLOBULIN G [Suspect]
     Active Substance: HUMAN IMMUNOGLOBULIN G
     Dosage: 40 GRAM, Q4WEEKS
     Dates: start: 20190724
  4. HUMAN IMMUNOGLOBULIN G [Suspect]
     Active Substance: HUMAN IMMUNOGLOBULIN G
     Indication: Immunodeficiency common variable
     Dosage: 40 GRAM, Q4WEEKS
  5. LAMICTAL [Suspect]
     Active Substance: LAMOTRIGINE
     Indication: Bipolar disorder
  6. ACETAMINOPHEN [Concomitant]
     Active Substance: ACETAMINOPHEN
  7. EPINEPHRINE [Concomitant]
     Active Substance: EPINEPHRINE
  8. BUSPIRONE HCL [Concomitant]
     Active Substance: BUSPIRONE HYDROCHLORIDE
     Indication: Product used for unknown indication
  9. OMEPRAZOLE [Concomitant]
     Active Substance: OMEPRAZOLE
  10. METHOCARBAMOL [Concomitant]
     Active Substance: METHOCARBAMOL
  11. METHYLPHENIDATE HYDROCHLORIDE [Concomitant]
     Active Substance: METHYLPHENIDATE HYDROCHLORIDE
  12. BREO ELLIPTA [Concomitant]
     Active Substance: FLUTICASONE FUROATE\VILANTEROL TRIFENATATE
  13. POTASSIUM CHLORIDE [Concomitant]
     Active Substance: POTASSIUM CHLORIDE
  14. SODIUM CHLORIDE [Concomitant]
     Active Substance: SODIUM CHLORIDE
  15. TRINTELLIX [Concomitant]
     Active Substance: VORTIOXETINE HYDROBROMIDE
  16. ALBUTEROL SULFATE [Concomitant]
     Active Substance: ALBUTEROL SULFATE
  17. MIRALAX [Concomitant]
     Active Substance: POLYETHYLENE GLYCOL 3350
  18. LEVOTHYROXINE SODIUM [Concomitant]
     Active Substance: LEVOTHYROXINE SODIUM
  19. IPRATROPIUM BROMIDE [Concomitant]
     Active Substance: IPRATROPIUM BROMIDE
  20. CYCLOBENZAPRINE HYDROCHLORIDE [Concomitant]
     Active Substance: CYCLOBENZAPRINE HYDROCHLORIDE
  21. BUTALBITAL, ACETAMINOPHEN, AND CAFFEINE [Concomitant]
     Active Substance: ACETAMINOPHEN\BUTALBITAL\CAFFEINE
  22. LEXAPRO [Concomitant]
     Active Substance: ESCITALOPRAM OXALATE
  23. CYPROHEPTADINE HYDROCHLORIDE [Concomitant]
     Active Substance: CYPROHEPTADINE HYDROCHLORIDE
  24. HYDROXYZINE HYDROCHLORIDE [Concomitant]
     Active Substance: HYDROXYZINE HYDROCHLORIDE
  25. MAGNESIUM [Concomitant]
     Active Substance: MAGNESIUM
  26. TYLENOL EXTRA STRENGTH [Concomitant]
     Active Substance: ACETAMINOPHEN
  27. ABILIFY MAINTENA [Concomitant]
     Active Substance: ARIPIPRAZOLE
  28. ONDANSETRON HYDROCHLORIDE [Concomitant]
     Active Substance: ONDANSETRON HYDROCHLORIDE
  29. ASPIRIN [Concomitant]
     Active Substance: ASPIRIN
  30. SUMATRIPTAN SUCCINATE [Concomitant]
     Active Substance: SUMATRIPTAN SUCCINATE
  31. DIPHENHYDRAMINE [Concomitant]
     Active Substance: DIPHENHYDRAMINE
     Indication: Product used for unknown indication
  32. RIZATRIPTAN [Concomitant]
     Active Substance: RIZATRIPTAN
  33. COCONUT OIL [Concomitant]
     Active Substance: COCONUT OIL
  34. MECLIZINE HYDROCHLORIDE [Concomitant]
     Active Substance: MECLIZINE HYDROCHLORIDE
  35. LEVOTHYROXINE [Concomitant]
     Active Substance: LEVOTHYROXINE
  36. XARELTO [Concomitant]
     Active Substance: RIVAROXABAN
  37. CHROMIUM PICOLINATE [Concomitant]
     Active Substance: CHROMIUM PICOLINATE
  38. CALCIUM [Concomitant]
     Active Substance: CALCIUM
  39. BENZONATATE [Concomitant]
     Active Substance: BENZONATATE
  40. DIAZEPAM [Concomitant]
     Active Substance: DIAZEPAM
  41. HERBALS\TURMERIC [Concomitant]
     Active Substance: HERBALS\TURMERIC
  42. VICTOZA [Concomitant]
     Active Substance: LIRAGLUTIDE
     Indication: Product used for unknown indication
  43. TERBINAFINE [Concomitant]
     Active Substance: TERBINAFINE
     Indication: Product used for unknown indication
  44. CYMBALTA [Concomitant]
     Active Substance: DULOXETINE HYDROCHLORIDE
     Indication: Product used for unknown indication
  45. HEPARIN [Concomitant]
     Active Substance: HEPARIN SODIUM
  46. TRAMADOL [Concomitant]
     Active Substance: TRAMADOL
  47. CALCIUM CITRATE\VITAMIN D [Concomitant]
     Active Substance: CALCIUM CITRATE\VITAMIN D
  48. CITRATE [Concomitant]
     Active Substance: CITRIC ACID MONOHYDRATE
  49. VITAMIN D [Concomitant]
     Active Substance: VITAMIN D NOS
  50. HERBALS\TURMERIC [Concomitant]
     Active Substance: HERBALS\TURMERIC
  51. DULOXETINE [Concomitant]
     Active Substance: DULOXETINE
  52. CIPRO [Concomitant]
     Active Substance: CIPROFLOXACIN HYDROCHLORIDE
  53. DOXYCYCLINE [Concomitant]
     Active Substance: DOXYCYCLINE
  54. CYCLOBENZAPRINE [Concomitant]
     Active Substance: CYCLOBENZAPRINE
  55. SUMATRIPTAN [Concomitant]
     Active Substance: SUMATRIPTAN
  56. CYPROHEPTADINE [Concomitant]
     Active Substance: CYPROHEPTADINE
  57. ALBUTEROL [Concomitant]
     Active Substance: ALBUTEROL
  58. SEROQUEL [Concomitant]
     Active Substance: QUETIAPINE FUMARATE
  59. DIPHENHYDRAMINE HYDROCHLORIDE [Concomitant]
     Active Substance: DIPHENHYDRAMINE HYDROCHLORIDE
  60. PREDNISONE [Concomitant]
     Active Substance: PREDNISONE
  61. ATOMOXETINE HYDROCHLORIDE [Concomitant]
     Active Substance: ATOMOXETINE HYDROCHLORIDE
  62. LIPITOR [Concomitant]
     Active Substance: ATORVASTATIN CALCIUM
  63. VITAMIN D3 [Concomitant]
     Active Substance: CHOLECALCIFEROL
  64. LAMOTRIGINE [Concomitant]
     Active Substance: LAMOTRIGINE
  65. LOSARTAN POTASSIUM [Concomitant]
     Active Substance: LOSARTAN POTASSIUM
  66. AIMOVIG [Concomitant]
     Active Substance: ERENUMAB-AOOE
  67. OLOPATADINE HYDROCHLORIDE [Concomitant]
     Active Substance: OLOPATADINE HYDROCHLORIDE
  68. COMBIVENT [Concomitant]
     Active Substance: ALBUTEROL SULFATE\IPRATROPIUM BROMIDE
  69. QULIPTA [Concomitant]
     Active Substance: ATOGEPANT
  70. AMLODIPINE BESYLATE [Concomitant]
     Active Substance: AMLODIPINE BESYLATE

REACTIONS (36)
  - Bipolar disorder [Unknown]
  - Pneumonia [Unknown]
  - Arthritis infective [Unknown]
  - Psychotic disorder [Unknown]
  - Headache [Recovering/Resolving]
  - Weight increased [Unknown]
  - Gastrointestinal disorder [Unknown]
  - Gingivitis [Unknown]
  - Tooth infection [Unknown]
  - Nasopharyngitis [Recovering/Resolving]
  - Depression [Unknown]
  - Bronchitis [Unknown]
  - Urinary tract infection [Unknown]
  - Localised infection [Unknown]
  - Infected cyst [Unknown]
  - Parotid duct obstruction [Unknown]
  - Fall [Unknown]
  - Body height decreased [Unknown]
  - Oral infection [Unknown]
  - Ear infection [Unknown]
  - Neck pain [Unknown]
  - Application site irritation [Unknown]
  - Product dose omission in error [Unknown]
  - Device infusion issue [Unknown]
  - Ataxia [Unknown]
  - Agitation [Unknown]
  - Pain [Unknown]
  - Anxiety [Unknown]
  - Chest pain [Unknown]
  - Pain in extremity [Unknown]
  - Dyspnoea [Unknown]
  - Migraine [Recovering/Resolving]
  - Back pain [Unknown]
  - Pyrexia [Unknown]
  - Abdominal pain [Unknown]
  - Dizziness [Unknown]

NARRATIVE: CASE EVENT DATE: 20220615
